FAERS Safety Report 25495088 (Version 1)
Quarter: 2025Q2

REPORT INFORMATION
  Report Type: Report from Study
  Country: US (occurrence: US)
  Receive Date: 20250630
  Receipt Date: 20250630
  Transmission Date: 20250717
  Serious: Yes (Other)
  Sender: MYLAN
  Company Number: US-MYLANLABS-2024M1079760

PATIENT
  Sex: Male

DRUGS (2)
  1. DILANTIN [Suspect]
     Active Substance: PHENYTOIN
     Indication: Product used for unknown indication
  2. DILANTIN [Suspect]
     Active Substance: PHENYTOIN
     Dosage: UNK, BID (2 TIMES A DAY)

REACTIONS (4)
  - Seizure [Unknown]
  - Adverse drug reaction [Unknown]
  - Therapeutic response unexpected [Unknown]
  - Product taste abnormal [Unknown]
